FAERS Safety Report 9269294 (Version 1)
Quarter: 2013Q2

REPORT INFORMATION
  Report Type: Spontaneous
  Country: US (occurrence: US)
  Receive Date: 20130503
  Receipt Date: 20130503
  Transmission Date: 20140414
  Serious: No
  Sender: FDA-Public Use
  Company Number: US-PFIZER INC-2013133334

PATIENT
  Sex: Male

DRUGS (5)
  1. TOVIAZ [Suspect]
     Indication: POLLAKIURIA
     Dosage: 4 MG, 1X/DAY
     Route: 048
     Dates: start: 20130415, end: 20130426
  2. COUMADIN [Concomitant]
     Dosage: UNK
  3. DILTIAZEM [Concomitant]
     Indication: HYPERTENSION
     Dosage: 240 MG, 1X/DAY
  4. REVLIMID [Concomitant]
     Indication: PLASMA CELL MYELOMA
     Dosage: UNK
  5. FINASTERIDE [Concomitant]
     Indication: PROSTATOMEGALY
     Dosage: UNK

REACTIONS (3)
  - Back pain [Unknown]
  - Pain in extremity [Unknown]
  - Muscle spasms [Unknown]
